FAERS Safety Report 4894860-8 (Version None)
Quarter: 2006Q1

REPORT INFORMATION
  Report Type: 
  Country: None (occurrence: None)
  Receive Date: 20060124
  Receipt Date: 20060113
  Transmission Date: 20060701
  Serious: Yes (Hospitalization)
  Sender: FDA-Public Use
  Company Number: 2006-US-00372

PATIENT
  Age: 81 Year
  Sex: Female

DRUGS (1)
  1. PROGLYCEM [Suspect]
     Indication: HYPOGLYCAEMIA
     Dates: start: 20051128, end: 20051202

REACTIONS (1)
  - ECZEMA [None]
